FAERS Safety Report 20748532 (Version 1)
Quarter: 2022Q2

REPORT INFORMATION
  Report Type: Spontaneous
  Country: US (occurrence: US)
  Receive Date: 20220426
  Receipt Date: 20220426
  Transmission Date: 20220720
  Serious: No
  Sender: FDA-Public Use
  Company Number: US-Calliditas-2022CAL00046

PATIENT
  Age: 65 Year
  Sex: Female

DRUGS (1)
  1. TARPEYO [Suspect]
     Active Substance: BUDESONIDE
     Indication: IgA nephropathy
     Dosage: 16 MG DAILY
     Route: 050
     Dates: start: 20220330

REACTIONS (4)
  - Procedural pain [Recovering/Resolving]
  - Blood pressure increased [Unknown]
  - Back pain [Recovering/Resolving]
  - Flank pain [Recovering/Resolving]
